FAERS Safety Report 19710225 (Version 2)
Quarter: 2021Q3

REPORT INFORMATION
  Report Type: Spontaneous
  Country: US (occurrence: US)
  Receive Date: 20210817
  Receipt Date: 20210928
  Transmission Date: 20211014
  Serious: Yes (Hospitalization)
  Sender: FDA-Public Use
  Company Number: US-GW PHARMA-202108USGW03915

PATIENT

DRUGS (1)
  1. EPIDIOLEX [Suspect]
     Active Substance: CANNABIDIOL
     Indication: EPILEPSY
     Dosage: 10.73 MG/KG/DAY, 220 MILLIGRAM, BID
     Route: 048
     Dates: start: 20201211

REACTIONS (4)
  - Product use in unapproved indication [Unknown]
  - Gastrostomy [Unknown]
  - Respiratory tract congestion [Unknown]
  - Hospitalisation [Unknown]

NARRATIVE: CASE EVENT DATE: 20210807
